FAERS Safety Report 11491066 (Version 1)
Quarter: 2015Q3

REPORT INFORMATION
  Report Type: Spontaneous
  Country: US (occurrence: US)
  Receive Date: 20150910
  Receipt Date: 20150910
  Transmission Date: 20151125
  Serious: No
  Sender: FDA-Public Use
  Company Number: US-JNJFOC-20150816321

PATIENT
  Sex: Male
  Weight: 54.43 kg

DRUGS (1)
  1. DURAGESIC [Suspect]
     Active Substance: FENTANYL
     Indication: PRODUCT USED FOR UNKNOWN INDICATION
     Route: 062
     Dates: start: 2000, end: 2000

REACTIONS (5)
  - Weight decreased [Unknown]
  - Bedridden [Unknown]
  - Fatigue [Unknown]
  - Pain [Unknown]
  - Weight increased [Unknown]
